FAERS Safety Report 10003940 (Version 1)
Quarter: 2014Q1

REPORT INFORMATION
  Report Type: Spontaneous
  Country: US (occurrence: US)
  Receive Date: 20140312
  Receipt Date: 20140312
  Transmission Date: 20141002
  Serious: No
  Sender: FDA-Public Use
  Company Number: US-INCYTE CORPORATION-2014IN000133

PATIENT
  Sex: Female

DRUGS (8)
  1. JAKAFI [Suspect]
     Indication: MYELOFIBROSIS
     Dosage: 5 MG (4 TABLETS TWICE A DAY)
     Route: 048
     Dates: start: 201310
  2. SYNTHROID [Concomitant]
  3. APPEAREX [Concomitant]
  4. OMEPRAZOLE DR [Concomitant]
  5. BENZONATATE [Concomitant]
  6. POTASSIUM [Concomitant]
     Dosage: 2.5 MEQ
  7. B-12 [Concomitant]
     Dosage: 2.500 MCG
  8. DAILY MULTIVITAMIN [Concomitant]

REACTIONS (1)
  - Therapeutic response unexpected [Unknown]
